FAERS Safety Report 4880589-9 (Version None)
Quarter: 2005Q4

REPORT INFORMATION
  Report Type: 
  Country: None (occurrence: None)
  Receive Date: 20051223
  Receipt Date: 20051116
  Transmission Date: 20060501
  Serious: No
  Sender: FDA-Public Use
  Company Number: 05P-163-0317601-00

PATIENT
  Age: 64 Year
  Sex: Male
  Weight: 88.905 kg

DRUGS (16)
  1. HUMIRA [Suspect]
     Indication: RHEUMATOID ARTHRITIS
     Dosage: 40 MG, 1 IN 2 WK, SUBCUTANEOUS
     Route: 058
     Dates: start: 20050701
  2. CELECOXIB [Concomitant]
  3. AMLODIPINE BESYLATE [Concomitant]
  4. ZETIA [Concomitant]
  5. MIRTAZAPINE [Concomitant]
  6. METHOTREXATE [Concomitant]
  7. FOLIC ACID [Concomitant]
  8. GEMFIBROZIL [Concomitant]
  9. OXYCODONE HCL [Concomitant]
  10. DOXAZOSIN MESYLATE [Concomitant]
  11. DOCUSATE SODIUM [Concomitant]
  12. MULTIVITAMIN [Concomitant]
  13. CYANOCOBALAMIN [Concomitant]
  14. ASCORIBC ACID [Concomitant]
  15. ERGOCALCIFEROL [Concomitant]
  16. CALCIUM GLUCONATE [Concomitant]

REACTIONS (3)
  - INJECTION SITE HAEMORRHAGE [None]
  - INJECTION SITE IRRITATION [None]
  - INJECTION SITE NODULE [None]
